FAERS Safety Report 6299487-1 (Version None)
Quarter: 2009Q3

REPORT INFORMATION
  Report Type: 
  Country: None (occurrence: None)
  Receive Date: 20090806
  Receipt Date: 20090729
  Transmission Date: 20100115
  Serious: Yes (Hospitalization)
  Sender: FDA-Public Use
  Company Number: B0586327A

PATIENT
  Sex: Male

DRUGS (15)
  1. ALKERAN [Suspect]
     Indication: DRUG USE FOR UNKNOWN INDICATION
     Route: 042
     Dates: start: 20090601, end: 20090601
  2. POSACONAZOLE [Suspect]
     Indication: ANTIFUNGAL PROPHYLAXIS
     Dosage: 200MG THREE TIMES PER DAY
     Route: 048
     Dates: start: 20090617, end: 20090630
  3. TRIFLUCAN [Suspect]
     Route: 048
     Dates: start: 20090613, end: 20090616
  4. TAZOCILLINE [Suspect]
     Indication: DRUG USE FOR UNKNOWN INDICATION
     Dosage: 4G THREE TIMES PER DAY
     Route: 042
     Dates: start: 20090613, end: 20090601
  5. FLAGYL [Suspect]
     Indication: DRUG USE FOR UNKNOWN INDICATION
     Route: 048
     Dates: start: 20090615, end: 20090601
  6. PENTACARINAT [Suspect]
     Indication: DRUG USE FOR UNKNOWN INDICATION
     Dosage: 300MG MONTHLY
     Route: 055
     Dates: start: 20090603, end: 20090603
  7. AMBISOME [Suspect]
     Indication: DRUG USE FOR UNKNOWN INDICATION
     Route: 042
     Dates: end: 20090616
  8. MORPHINE [Suspect]
     Indication: DRUG USE FOR UNKNOWN INDICATION
     Dosage: 150MG PER DAY
     Route: 042
     Dates: start: 20090610
  9. VELCADE [Suspect]
     Indication: MULTIPLE MYELOMA
     Route: 042
     Dates: start: 20080715, end: 20090531
  10. FLUDARABINE PHOSPHATE [Suspect]
     Indication: DRUG USE FOR UNKNOWN INDICATION
     Route: 042
     Dates: start: 20090529, end: 20090531
  11. METHOTREXATE [Suspect]
     Indication: DRUG USE FOR UNKNOWN INDICATION
     Route: 042
     Dates: start: 20090604, end: 20090609
  12. VANCOMYCIN [Suspect]
     Indication: DRUG USE FOR UNKNOWN INDICATION
     Route: 042
     Dates: start: 20090611, end: 20090601
  13. PRIMPERAN [Suspect]
     Indication: DRUG USE FOR UNKNOWN INDICATION
     Route: 051
  14. LOXEN LP [Suspect]
     Indication: DRUG USE FOR UNKNOWN INDICATION
     Route: 048
  15. CORTICOIDS [Concomitant]
     Route: 065

REACTIONS (10)
  - ALANINE AMINOTRANSFERASE INCREASED [None]
  - ASPARTATE AMINOTRANSFERASE INCREASED [None]
  - BILIRUBIN CONJUGATED INCREASED [None]
  - BLOOD ALKALINE PHOSPHATASE INCREASED [None]
  - BLOOD BILIRUBIN INCREASED [None]
  - CHOLESTASIS [None]
  - GAMMA-GLUTAMYLTRANSFERASE INCREASED [None]
  - HEPATIC FUNCTION ABNORMAL [None]
  - HEPATOCELLULAR INJURY [None]
  - MUCOSAL INFLAMMATION [None]
